FAERS Safety Report 17235539 (Version 1)
Quarter: 2020Q1

REPORT INFORMATION
  Report Type: Spontaneous
  Country: US (occurrence: US)
  Receive Date: 20200103
  Receipt Date: 20200103
  Transmission Date: 20200409
  Serious: Yes (Other)
  Sender: FDA-Public Use
  Company Number: None

PATIENT
  Age: 40 Year
  Sex: Female
  Weight: 69.75 kg

DRUGS (1)
  1. EMGALITY [Suspect]
     Active Substance: GALCANEZUMAB-GNLM
     Indication: MIGRAINE
     Dosage: ?          QUANTITY:1 INJECTION(S);OTHER FREQUENCY:1 TIME A MONTH;?
     Route: 030
     Dates: end: 20200101

REACTIONS (4)
  - Urticaria [None]
  - Malaise [None]
  - Injection site reaction [None]
  - Injection site cellulitis [None]

NARRATIVE: CASE EVENT DATE: 20200102
